FAERS Safety Report 5338613-5 (Version None)
Quarter: 2007Q2

REPORT INFORMATION
  Report Type: 
  Country: None (occurrence: None)
  Receive Date: 20070322
  Receipt Date: 20060911
  Transmission Date: 20071010
  Serious: Yes (Other)
  Sender: FDA-Public Use
  Company Number: 200613109BCC

PATIENT
  Age: 79 Year
  Sex: Male
  Weight: 117.9352 kg

DRUGS (4)
  1. ALEVE [Suspect]
     Indication: ARTHRITIS
     Dosage: SEE IMAGE
     Route: 048
     Dates: start: 20040101
  2. ALEVE [Suspect]
     Indication: ARTHRITIS
     Dosage: SEE IMAGE
     Route: 048
     Dates: start: 20040101
  3. PROBENECID [Concomitant]
  4. AVAPRO [Concomitant]

REACTIONS (2)
  - ARTHRALGIA [None]
  - HAEMATOCHEZIA [None]
